FAERS Safety Report 19455353 (Version 3)
Quarter: 2022Q1

REPORT INFORMATION
  Report Type: Report from Study
  Country: CO (occurrence: CO)
  Receive Date: 20210623
  Receipt Date: 20220302
  Transmission Date: 20220423
  Serious: Yes (Other)
  Sender: FDA-Public Use
  Company Number: NVSC2021CO113563

PATIENT
  Sex: Female
  Weight: 58 kg

DRUGS (4)
  1. COSENTYX [Suspect]
     Active Substance: SECUKINUMAB
     Indication: Psoriatic arthropathy
     Dosage: 300 MG, QMO
     Route: 058
     Dates: start: 2016
  2. COSENTYX [Suspect]
     Active Substance: SECUKINUMAB
     Dosage: 300 MG, QMO
     Route: 058
  3. LANTUS [Concomitant]
     Active Substance: INSULIN GLARGINE
     Indication: Diabetes mellitus
     Dosage: 30 UNIT, Q12H
     Route: 058
     Dates: start: 2014
  4. LEVOTHYROXINE [Concomitant]
     Active Substance: LEVOTHYROXINE
     Indication: Thyroid disorder
     Dosage: 125 MG, QD
     Route: 048
     Dates: start: 2015

REACTIONS (10)
  - Paralysis [Unknown]
  - Psoriatic arthropathy [Unknown]
  - Pain [Unknown]
  - Trigger finger [Unknown]
  - Dandruff [Unknown]
  - Disease recurrence [Unknown]
  - Drooling [Unknown]
  - Pain in extremity [Unknown]
  - Muscle rigidity [Unknown]
  - Psoriasis [Recovered/Resolved]
